FAERS Safety Report 19062222 (Version 1)
Quarter: 2021Q1

REPORT INFORMATION
  Report Type: Report from Study
  Country: JP (occurrence: JP)
  Receive Date: 20210326
  Receipt Date: 20210326
  Transmission Date: 20210420
  Serious: Yes (Other)
  Sender: FDA-Public Use
  Company Number: JP-GILEAD-2021-0522794

PATIENT
  Age: 33 Year
  Sex: Male

DRUGS (7)
  1. RITUXIMAB. [Concomitant]
     Active Substance: RITUXIMAB
     Indication: LYMPHOMA
  2. PROCARBAZINE HYDROCHLORIDE [Concomitant]
     Active Substance: PROCARBAZINE HYDROCHLORIDE
     Indication: LYMPHOMA
  3. RALTEGRAVIR POTASSIUM [Concomitant]
     Active Substance: RALTEGRAVIR POTASSIUM
     Indication: HIV INFECTION
  4. METHOTREXATE. [Concomitant]
     Active Substance: METHOTREXATE
     Indication: LYMPHOMA
  5. VINCRISTINE SULFATE. [Concomitant]
     Active Substance: VINCRISTINE SULFATE
     Indication: LYMPHOMA
  6. EMTRICITABINE/TENOFOVIR ALAFENAMIDE [Suspect]
     Active Substance: EMTRICITABINE\TENOFOVIR
     Indication: HIV INFECTION
     Dosage: UNK
     Route: 065
  7. CYTARABINE. [Concomitant]
     Active Substance: CYTARABINE
     Indication: LYMPHOMA

REACTIONS (1)
  - Pancytopenia [Unknown]
